FAERS Safety Report 14017265 (Version 3)
Quarter: 2017Q4

REPORT INFORMATION
  Report Type: Report from Study
  Country: US (occurrence: BR)
  Receive Date: 20170927
  Receipt Date: 20171229
  Transmission Date: 20180321
  Serious: Yes (Other)
  Sender: FDA-Public Use
  Company Number: US-SUNOVION-2017SUN004193

PATIENT
  Age: 63 Year
  Sex: Female
  Weight: 79 kg

DRUGS (9)
  1. INDACATEROL AND GLYCOPYRROLATE [Suspect]
     Active Substance: GLYCOPYRROLATE\INDACATEROL MALEATE
     Indication: BRONCHITIS
     Dosage: 1 (110/50 UG), QD
     Route: 055
     Dates: start: 201703
  2. INDACATEROL AND GLYCOPYRROLATE [Suspect]
     Active Substance: GLYCOPYRROLATE\INDACATEROL MALEATE
     Indication: EMPHYSEMA
     Dosage: 1 (110/50 UG), QD
     Route: 055
  3. INDACATEROL AND GLYCOPYRROLATE [Suspect]
     Active Substance: GLYCOPYRROLATE\INDACATEROL MALEATE
     Dosage: 1 (110/50 UG), QD
     Route: 055
  4. INDACATEROL AND GLYCOPYRROLATE [Suspect]
     Active Substance: GLYCOPYRROLATE\INDACATEROL MALEATE
     Indication: CHRONIC OBSTRUCTIVE PULMONARY DISEASE
     Dosage: 1 (110/50 UG), QD
     Route: 055
  5. OMEPRAZOLE. [Suspect]
     Active Substance: OMEPRAZOLE
     Indication: HIATUS HERNIA
     Route: 065
  6. VITAMIN D [Concomitant]
     Active Substance: CHOLECALCIFEROL
  7. INDACATEROL AND GLYCOPYRROLATE [Suspect]
     Active Substance: GLYCOPYRROLATE\INDACATEROL MALEATE
     Dosage: 1 (110/50 UG), QD
     Route: 055
     Dates: start: 20171025
  8. DOMPERIDONE [Concomitant]
     Active Substance: DOMPERIDONE
  9. RIVOTRIL [Concomitant]
     Active Substance: CLONAZEPAM

REACTIONS (25)
  - Fall [Unknown]
  - Panic attack [Unknown]
  - Productive cough [Recovering/Resolving]
  - Fatigue [Not Recovered/Not Resolved]
  - Aphthous ulcer [Not Recovered/Not Resolved]
  - Headache [Unknown]
  - Dry throat [Recovered/Resolved]
  - Sneezing [Recovering/Resolving]
  - Fear [Unknown]
  - Depressed mood [Not Recovered/Not Resolved]
  - Flatulence [Unknown]
  - Nausea [Not Recovered/Not Resolved]
  - Upper limb fracture [Not Recovered/Not Resolved]
  - Dysphonia [Unknown]
  - Humerus fracture [Not Recovered/Not Resolved]
  - Memory impairment [Unknown]
  - Drug ineffective [Unknown]
  - Ligament sprain [Unknown]
  - Impaired healing [Unknown]
  - Malaise [Unknown]
  - Swelling [Unknown]
  - Erythema [Unknown]
  - Gastrooesophageal reflux disease [Unknown]
  - Joint swelling [Unknown]
  - Influenza like illness [Unknown]

NARRATIVE: CASE EVENT DATE: 20170728
